FAERS Safety Report 9159647 (Version 1)
Quarter: 2013Q1

REPORT INFORMATION
  Report Type: Spontaneous
  Country: ZA (occurrence: None)
  Receive Date: 20130219
  Receipt Date: 20130219
  Transmission Date: 20140127
  Serious: Yes (Other)
  Sender: FDA-Public Use
  Company Number: B0868124A

PATIENT
  Age: 42 Year
  Sex: Male

DRUGS (4)
  1. LAMIVUDINE-HIV [Suspect]
     Indication: HIV INFECTION
     Dates: start: 201003
  2. STAVUDINE [Suspect]
     Dates: start: 201003
  3. EFAVIRENZ [Suspect]
  4. TENOFOVIR (FORMULATION UNKNOWN) (TENOFOVIR) [Suspect]

REACTIONS (3)
  - Immune reconstitution inflammatory syndrome [None]
  - Neuropathy peripheral [None]
  - Hepatitis E [None]
